FAERS Safety Report 4995223-7 (Version None)
Quarter: 2006Q2

REPORT INFORMATION
  Report Type: 
  Country: None (occurrence: None)
  Receive Date: 20060508
  Receipt Date: 20060427
  Transmission Date: 20061013
  Serious: Yes (Hospitalization, Other)
  Sender: FDA-Public Use
  Company Number: US-MERCK-0604USA04205

PATIENT
  Age: 66 Year
  Sex: Male
  Weight: 60 kg

DRUGS (12)
  1. VIOXX [Suspect]
     Indication: ARTHRALGIA
     Route: 048
     Dates: start: 20010101, end: 20040101
  2. AVAPRO [Concomitant]
     Route: 065
     Dates: start: 20011205, end: 20031021
  3. CATAPRES [Concomitant]
     Route: 065
  4. PHOSLO [Concomitant]
     Route: 065
  5. VERELAN [Concomitant]
     Route: 065
  6. ATENOL [Concomitant]
     Route: 065
  7. NORVASC [Concomitant]
     Route: 065
     Dates: start: 20030212, end: 20031205
  8. RANITIDINE [Concomitant]
     Route: 065
  9. TUMS [Concomitant]
     Route: 065
  10. VISTARIL [Concomitant]
     Route: 065
  11. RESTORIL [Concomitant]
     Route: 065
  12. ASPIRIN [Concomitant]
     Route: 065
     Dates: start: 20021210, end: 20030201

REACTIONS (4)
  - BLOOD CHOLESTEROL INCREASED [None]
  - CEREBROVASCULAR ACCIDENT [None]
  - HEART RATE IRREGULAR [None]
  - MYOCARDIAL INFARCTION [None]
